FAERS Safety Report 15974369 (Version 1)
Quarter: 2019Q1

REPORT INFORMATION
  Report Type: Spontaneous
  Country: KR (occurrence: KR)
  Receive Date: 20190218
  Receipt Date: 20190218
  Transmission Date: 20190418
  Serious: Yes (Other)
  Sender: FDA-Public Use
  Company Number: KR-SA-2019SA040566

PATIENT
  Age: 38 Year
  Sex: Male

DRUGS (6)
  1. CALCORT [Suspect]
     Active Substance: DEFLAZACORT
     Dosage: 7 DF, QD
     Route: 048
  2. RANITIDINE. [Suspect]
     Active Substance: RANITIDINE
  3. ACETYLSALICYLIC ACID [Suspect]
     Active Substance: ASPIRIN
  4. CALCORT [Suspect]
     Active Substance: DEFLAZACORT
     Dosage: 9 DF, QD
     Route: 048
  5. CALCORT [Suspect]
     Active Substance: DEFLAZACORT
     Dosage: 8 DF, QD
     Route: 048
  6. ATORVASTATIN [Suspect]
     Active Substance: ATORVASTATIN

REACTIONS (1)
  - Toxic epidermal necrolysis [Unknown]
